FAERS Safety Report 10243583 (Version 1)
Quarter: 2014Q2

REPORT INFORMATION
  Report Type: Spontaneous
  Country: US (occurrence: None)
  Receive Date: 20140616
  Receipt Date: 20140616
  Transmission Date: 20141212
  Serious: Yes (Hospitalization)
  Sender: FDA-Public Use
  Company Number: None

PATIENT
  Age: 51 Year
  Sex: Female
  Weight: 77 kg

DRUGS (6)
  1. HYDROXYTYROSOL [Suspect]
     Indication: BREAST CANCER
     Route: 048
     Dates: start: 20131203
  2. HYDROXYTYROSOL [Suspect]
     Indication: PROPHYLAXIS
     Route: 048
     Dates: start: 20131203
  3. CLONAZEPAM [Concomitant]
  4. NASONEX [Concomitant]
  5. ZOFRAN [Concomitant]
  6. PROTONIX [Concomitant]

REACTIONS (1)
  - Splenic infarction [None]
